FAERS Safety Report 21146225 (Version 2)
Quarter: 2022Q3

REPORT INFORMATION
  Report Type: Report from Study
  Country: US (occurrence: CN)
  Receive Date: 20220729
  Receipt Date: 20220829
  Transmission Date: 20221027
  Serious: Yes (Hospitalization)
  Sender: FDA-Public Use
  Company Number: US-PHARMACOVIGILANCE-CN-KAD-22-00629

PATIENT

DRUGS (7)
  1. METHYLPREDNISOLONE [Concomitant]
     Active Substance: METHYLPREDNISOLONE
     Indication: Chronic graft versus host disease
     Dosage: 8 MILLIGRAM, BID
     Route: 048
     Dates: start: 202010
  2. PROGRAF [Concomitant]
     Active Substance: TACROLIMUS
     Indication: Chronic graft versus host disease
     Dosage: 1 PILL, 1 DOSAGE FORM, BID
     Route: 048
     Dates: start: 202010
  3. URSODIOL [Concomitant]
     Active Substance: URSODIOL
     Indication: Chronic graft versus host disease
     Dosage: 1 PILL, 1 DOSAGE FORM, BID
     Route: 048
     Dates: start: 202010
  4. BICYCLOL [Concomitant]
     Active Substance: BICYCLOL
     Indication: Chronic graft versus host disease
     Dosage: 2 PILLS, 2 DOSAGE FORMS, BID
     Route: 048
     Dates: start: 202010, end: 20220625
  5. ROCALTROL [Concomitant]
     Active Substance: CALCITRIOL
     Indication: Osteoporosis prophylaxis
     Dosage: 6 DOSAGE FORM, PRN
     Route: 048
     Dates: start: 202010
  6. SODIUM HYALURONATE [Concomitant]
     Active Substance: HYALURONATE SODIUM
     Indication: Product used for unknown indication
     Dosage: UNK, PRN
     Route: 047
     Dates: start: 202010
  7. COMPOUND CHLORHEXIDINE GARGLE [Concomitant]
     Indication: Chronic graft versus host disease
     Dosage: UNK, PRN
     Route: 048
     Dates: start: 202010

REACTIONS (1)
  - Skin bacterial infection [Recovering/Resolving]

NARRATIVE: CASE EVENT DATE: 20220623
